FAERS Safety Report 6796235-3 (Version None)
Quarter: 2010Q2

REPORT INFORMATION
  Report Type: 
  Country: None (occurrence: None)
  Receive Date: 20100624
  Receipt Date: 20100624
  Transmission Date: 20101027
  Serious: Yes (Hospitalization)
  Sender: FDA-Public Use
  Company Number: None

PATIENT
  Age: 58 Year
  Sex: Female
  Weight: 41.844 kg

DRUGS (2)
  1. DOXORUBICIN HYDROCHLORIDE [Suspect]
     Indication: BREAST CANCER STAGE III
     Dosage: 85 MG Q2WEEKS INTRAVENOUS
     Route: 042
     Dates: start: 20100414, end: 20100526
  2. CYCLOPHOSPHAMIDE [Suspect]
     Indication: BREAST CANCER STAGE III
     Dosage: 850 MG Q2WEEKS INTRAVENOUS
     Route: 042
     Dates: start: 20100414, end: 20100526

REACTIONS (4)
  - ANAEMIA [None]
  - INFECTION [None]
  - SKIN ULCER [None]
  - WHITE BLOOD CELL COUNT INCREASED [None]
